FAERS Safety Report 25482179 (Version 3)
Quarter: 2025Q3

REPORT INFORMATION
  Report Type: Spontaneous
  Country: CA (occurrence: CA)
  Receive Date: 20250626
  Receipt Date: 20250707
  Transmission Date: 20251020
  Serious: Yes (Other)
  Sender: CELLTRION
  Company Number: CA-CELLTRION INC.-2025CA012926

PATIENT

DRUGS (3)
  1. INFLIXIMAB [Suspect]
     Active Substance: INFLIXIMAB
     Indication: Crohn^s disease
     Dosage: 120MG Q2 WEEKS
     Route: 058
     Dates: start: 20250425
  2. INFLIXIMAB [Suspect]
     Active Substance: INFLIXIMAB
     Dosage: 120MG Q2 WEEKS
     Route: 058
     Dates: start: 20250620
  3. PREDNISONE [Concomitant]
     Active Substance: PREDNISONE
     Indication: Product used for unknown indication
     Route: 065
     Dates: start: 20250326

REACTIONS (8)
  - Haematochezia [Unknown]
  - Condition aggravated [Unknown]
  - Weight decreased [Unknown]
  - Helicobacter infection [Unknown]
  - Pruritus [Unknown]
  - Abdominal pain upper [Unknown]
  - Diarrhoea [Unknown]
  - Impaired work ability [Unknown]
